FAERS Safety Report 22524051 (Version 1)
Quarter: 2023Q2

REPORT INFORMATION
  Report Type: Report from Study
  Country: CA (occurrence: CA)
  Receive Date: 20230606
  Receipt Date: 20230606
  Transmission Date: 20230721
  Serious: Yes (Death, Other)
  Sender: FDA-Public Use
  Company Number: CA-GILEAD-2023-0631217

PATIENT
  Sex: Female

DRUGS (5)
  1. SACITUZUMAB GOVITECAN-HZIY [Suspect]
     Active Substance: SACITUZUMAB GOVITECAN-HZIY
     Indication: Triple negative breast cancer
     Dosage: 450 MG
     Route: 042
     Dates: start: 20230505
  2. PERINDOPRIL [Concomitant]
     Active Substance: PERINDOPRIL
     Indication: Ischaemic cardiomyopathy
  3. METOPROLOL [Concomitant]
     Active Substance: METOPROLOL
     Indication: Ischaemic cardiomyopathy
  4. HYDROMORPHONE [Concomitant]
     Active Substance: HYDROMORPHONE
     Indication: Pain
  5. LORAZEPAM [Concomitant]
     Active Substance: LORAZEPAM

REACTIONS (1)
  - Death [Fatal]
